FAERS Safety Report 6180809-7 (Version None)
Quarter: 2009Q2

REPORT INFORMATION
  Report Type: 
  Country: None (occurrence: None)
  Receive Date: 20090506
  Receipt Date: 20090413
  Transmission Date: 20091009
  Serious: Yes (Disabling)
  Sender: FDA-Public Use
  Company Number: US-PFIZER INC-2009196422

PATIENT
  Sex: Female
  Weight: 74.83 kg

DRUGS (12)
  1. DETROL LA [Suspect]
     Indication: MICTURITION URGENCY
     Dosage: 4 MG, 2X/DAY
     Route: 048
     Dates: start: 20060101
  2. DETROL LA [Suspect]
     Indication: HYPERTONIC BLADDER
  3. LIPITOR [Concomitant]
     Dosage: UNK
  4. MELOXICAM [Concomitant]
     Dosage: UNK
  5. MOBIC [Concomitant]
     Dosage: UNK
  6. TRAZODONE [Concomitant]
     Dosage: UNK
  7. CITALOPRAM HYDROBROMIDE [Concomitant]
     Dosage: UNK
  8. CHANTIX [Concomitant]
     Dosage: UNK
  9. RISPERDAL [Concomitant]
     Dosage: UNK
  10. COMBIVENT [Concomitant]
     Dosage: UNK
  11. AZMACORT [Concomitant]
     Dosage: UNK
  12. PROAIR HFA [Concomitant]
     Dosage: UNK

REACTIONS (5)
  - DISABILITY [None]
  - DRUG INEFFECTIVE [None]
  - INCORRECT DOSE ADMINISTERED [None]
  - MICTURITION URGENCY [None]
  - URINARY INCONTINENCE [None]
